FAERS Safety Report 11127229 (Version 1)
Quarter: 2015Q2

REPORT INFORMATION
  Report Type: Spontaneous
  Country: US (occurrence: None)
  Receive Date: 20150520
  Receipt Date: 20150520
  Transmission Date: 20150821
  Serious: Yes (Disabling)
  Sender: FDA-Public Use
  Company Number: None

PATIENT
  Age: 72 Year
  Sex: Female
  Weight: 73.94 kg

DRUGS (9)
  1. OMEPRAZOLE. [Concomitant]
     Active Substance: OMEPRAZOLE
  2. GARCINO CAMBOGIA [Concomitant]
  3. ADVAIR HFA [Concomitant]
     Active Substance: FLUTICASONE PROPIONATE\SALMETEROL XINAFOATE
  4. LEVOFLOXACIN 500 MG TABLETS [Suspect]
     Active Substance: LEVOFLOXACIN
     Indication: BRONCHITIS
     Dosage: 500MG, 1 PILL, 10 DAYS, 1, MOUTH
     Route: 048
     Dates: start: 20150420, end: 20150430
  5. LOSARTAN [Concomitant]
     Active Substance: LOSARTAN
  6. TEMAZAPHAM [Concomitant]
  7. C Q10 [Concomitant]
  8. VITAMIN B12 [Concomitant]
     Active Substance: CYANOCOBALAMIN
  9. CITALOPRAM [Concomitant]
     Active Substance: CITALOPRAM HYDROBROMIDE

REACTIONS (10)
  - Gait disturbance [None]
  - Mental impairment [None]
  - Disturbance in attention [None]
  - Tendon pain [None]
  - Fatigue [None]
  - Rotator cuff syndrome [None]
  - Tendon discomfort [None]
  - Tremor [None]
  - Arthropathy [None]
  - Pain in extremity [None]

NARRATIVE: CASE EVENT DATE: 20150523
